FAERS Safety Report 4613481-5 (Version None)
Quarter: 2005Q1

REPORT INFORMATION
  Report Type: 
  Country: None (occurrence: None)
  Receive Date: 20050321
  Receipt Date: 20050111
  Transmission Date: 20050727
  Serious: Yes (Other)
  Sender: FDA-Public Use
  Company Number: JP-JNJFOC-20041006297

PATIENT
  Sex: Female
  Weight: 63.5 kg

DRUGS (10)
  1. REMICADE [Suspect]
     Route: 042
  2. REMICADE [Suspect]
     Indication: RHEUMATOID ARTHRITIS
     Route: 042
  3. METHOTREXATE [Concomitant]
     Route: 049
  4. METHOTREXATE [Concomitant]
     Route: 049
  5. PREDONINE [Concomitant]
     Route: 049
  6. LOXONINE [Concomitant]
     Route: 049
  7. FOLIAMIN [Concomitant]
     Route: 049
  8. TAKEPRON [Concomitant]
     Route: 049
  9. MUCOSTA [Concomitant]
     Route: 049
  10. ISCOTIN [Concomitant]
     Indication: TUBERCULOSIS PROPHYLAXIS
     Route: 049

REACTIONS (1)
  - INFUSION RELATED REACTION [None]
